FAERS Safety Report 6936360-7 (Version None)
Quarter: 2010Q3

REPORT INFORMATION
  Report Type: 
  Country: None (occurrence: None)
  Receive Date: 20100823
  Receipt Date: 20100814
  Transmission Date: 20110219
  Serious: Yes (Other)
  Sender: FDA-Public Use
  Company Number: US-SANOFI-AVENTIS-2010SA049228

PATIENT
  Sex: Male

DRUGS (3)
  1. SOLOSTAR [Suspect]
     Route: 058
  2. LANTUS [Suspect]
     Route: 058
  3. AMARYL [Concomitant]

REACTIONS (1)
  - DEVICE MALFUNCTION [None]
